FAERS Safety Report 17769186 (Version 2)
Quarter: 2020Q2

REPORT INFORMATION
  Report Type: Spontaneous
  Country: US (occurrence: US)
  Receive Date: 20200512
  Receipt Date: 20200522
  Transmission Date: 20200714
  Serious: Yes (Other)
  Sender: FDA-Public Use
  Company Number: US-SA-2020SA119512

PATIENT
  Sex: Male

DRUGS (1)
  1. ZANTAC 150 (RANITIDINE HYDROCHLORIDE) [Suspect]
     Active Substance: RANITIDINE HYDROCHLORIDE
     Dosage: UNK, QD (150-300MG OF ZANTAC DAILYFOR DECADES)

REACTIONS (4)
  - Colon cancer [Unknown]
  - Anxiety [Unknown]
  - Hepatic cancer [Unknown]
  - Renal cancer [Unknown]

NARRATIVE: CASE EVENT DATE: 201912
